FAERS Safety Report 20095957 (Version 1)
Quarter: 2021Q4

REPORT INFORMATION
  Report Type: Spontaneous
  Country: CN (occurrence: None)
  Receive Date: 20211122
  Receipt Date: 20211122
  Transmission Date: 20220303
  Serious: Yes (Other)
  Sender: FDA-Public Use
  Company Number: CN-ROCHE-2955085

PATIENT
  Age: 53 Year
  Sex: Male

DRUGS (23)
  1. GAZYVA [Suspect]
     Active Substance: OBINUTUZUMAB
     Indication: Diffuse large B-cell lymphoma
     Dosage: OBINUTUZUMAB + DECITABINE + CHIDAMIDE + ZANUBRUTINIB + PACLITAXEL ALBUMIN
     Route: 042
     Dates: start: 20211020
  2. MABTHERA [Suspect]
     Active Substance: RITUXIMAB
     Indication: Diffuse large B-cell lymphoma
     Dosage: R-CHOP
     Route: 065
     Dates: start: 202004
  3. MABTHERA [Suspect]
     Active Substance: RITUXIMAB
     Dosage: R-GDP+CHIDAMIDE
     Route: 065
     Dates: start: 202004, end: 202005
  4. MABTHERA [Suspect]
     Active Substance: RITUXIMAB
     Dosage: ALBUMIN PACLITAXEL + R2 (RITUXIMAB + LENALIDOMIDE) + CHIDAMIDE
     Route: 065
     Dates: start: 202006
  5. CYCLOPHOSPHAMIDE [Concomitant]
     Active Substance: CYCLOPHOSPHAMIDE
     Indication: Diffuse large B-cell lymphoma
     Dosage: CHOP
     Dates: start: 201912, end: 202003
  6. CYCLOPHOSPHAMIDE [Concomitant]
     Active Substance: CYCLOPHOSPHAMIDE
     Dosage: R-CHOP
     Dates: start: 202004
  7. DOXORUBICIN [Concomitant]
     Active Substance: DOXORUBICIN
     Indication: Diffuse large B-cell lymphoma
     Dosage: CHOP
     Dates: start: 201912, end: 202003
  8. DOXORUBICIN [Concomitant]
     Active Substance: DOXORUBICIN
     Dosage: R-CHOP
     Dates: start: 202004
  9. VINCRISTINE [Concomitant]
     Active Substance: VINCRISTINE
     Indication: Diffuse large B-cell lymphoma
     Dosage: CHOP
     Dates: start: 201912, end: 202003
  10. VINCRISTINE [Concomitant]
     Active Substance: VINCRISTINE
     Dosage: R-CHOP
     Dates: start: 202004
  11. PREDNISONE [Concomitant]
     Active Substance: PREDNISONE
     Indication: Diffuse large B-cell lymphoma
     Dosage: CHOP
     Dates: start: 201912, end: 202003
  12. PREDNISONE [Concomitant]
     Active Substance: PREDNISONE
     Dosage: R-CHOP
     Dates: start: 202004
  13. GEMCITABINE [Concomitant]
     Active Substance: GEMCITABINE
     Indication: Diffuse large B-cell lymphoma
     Dosage: R-GDP+CHIDAMIDE
     Dates: start: 202004, end: 202005
  14. DEXAMETHASONE [Concomitant]
     Active Substance: DEXAMETHASONE
     Indication: Diffuse large B-cell lymphoma
     Dosage: R-GDP+CHIDAMIDE
     Dates: start: 202004, end: 202005
  15. TUCIDINOSTAT [Concomitant]
     Active Substance: TUCIDINOSTAT
     Indication: Diffuse large B-cell lymphoma
     Dosage: R-GDP+CHIDAMIDE
     Dates: start: 202004, end: 202005
  16. TUCIDINOSTAT [Concomitant]
     Active Substance: TUCIDINOSTAT
     Dosage: ALBUMIN PACLITAXEL + R2 (RITUXIMAB + LENALIDOMIDE) + CHIDAMIDE
     Dates: start: 202006
  17. TUCIDINOSTAT [Concomitant]
     Active Substance: TUCIDINOSTAT
     Dosage: OBINUTUZUMAB + DECITABINE + CHIDAMIDE + ZANUBRUTINIB + PACLITAXEL ALBUMIN
     Dates: start: 2021
  18. LENALIDOMIDE [Concomitant]
     Active Substance: LENALIDOMIDE
     Indication: Diffuse large B-cell lymphoma
     Dosage: ALBUMIN PACLITAXEL + R2 (RITUXIMAB + LENALIDOMIDE) + CHIDAMIDE
     Dates: start: 202006
  19. PACLITAXEL [Concomitant]
     Active Substance: PACLITAXEL
     Indication: Diffuse large B-cell lymphoma
     Dosage: ALBUMIN PACLITAXEL + R2 (RITUXIMAB + LENALIDOMIDE) + CHIDAMIDE
     Dates: start: 202006
  20. PACLITAXEL [Concomitant]
     Active Substance: PACLITAXEL
     Dosage: OBINUTUZUMAB + DECITABINE + CHIDAMIDE + ZANUBRUTINIB + PACLITAXEL ALBUMIN
     Dates: start: 2021
  21. DECITABINE [Concomitant]
     Active Substance: DECITABINE
     Indication: Diffuse large B-cell lymphoma
     Dosage: OBINUTUZUMAB + DECITABINE + CHIDAMIDE + ZANUBRUTINIB + PACLITAXEL ALBUMIN
     Dates: start: 20211021, end: 20211025
  22. ZANUBRUTINIB [Concomitant]
     Active Substance: ZANUBRUTINIB
     Indication: Diffuse large B-cell lymphoma
     Dosage: OBINUTUZUMAB + DECITABINE + CHIDAMIDE + ZANUBRUTINIB + PACLITAXEL ALBUMIN
     Dates: start: 2021
  23. CISPLATIN [Concomitant]
     Active Substance: CISPLATIN
     Indication: Diffuse large B-cell lymphoma
     Dosage: R-GDP+CHIDAMIDE
     Dates: start: 202004, end: 202005

REACTIONS (4)
  - Necrosis [Unknown]
  - Haemorrhage [Unknown]
  - Neck mass [Unknown]
  - Platelet count decreased [Unknown]

NARRATIVE: CASE EVENT DATE: 20211001
